FAERS Safety Report 21511738 (Version 2)
Quarter: 2022Q4

REPORT INFORMATION
  Report Type: Spontaneous
  Country: PT (occurrence: PT)
  Receive Date: 20221027
  Receipt Date: 20221102
  Transmission Date: 20230112
  Serious: Yes (Hospitalization, Other)
  Sender: FDA-Public Use
  Company Number: PT-BENE-Lit_PT_20221003_144

PATIENT
  Sex: Male

DRUGS (2)
  1. IBUPROFEN [Suspect]
     Active Substance: IBUPROFEN
     Indication: Product used for unknown indication
     Dosage: UNK
     Route: 048
  2. ADRENALIN [Suspect]
     Active Substance: EPINEPHRINE
     Indication: Anaphylactic reaction
     Dosage: UNK
     Route: 030

REACTIONS (11)
  - Anaphylactic reaction [Recovered/Resolved]
  - Atrial fibrillation [Recovered/Resolved]
  - Cough [Recovered/Resolved]
  - Dyspnoea [Recovered/Resolved]
  - Diarrhoea [Recovered/Resolved]
  - Erythema [Recovered/Resolved]
  - Hypersensitivity [Recovered/Resolved]
  - Lip oedema [Recovered/Resolved]
  - Oedema peripheral [Recovered/Resolved]
  - Oxygen saturation decreased [Recovered/Resolved]
  - Periorbital oedema [Recovered/Resolved]
